FAERS Safety Report 14234023 (Version 2)
Quarter: 2018Q1

REPORT INFORMATION
  Report Type: Report from Study
  Country: DE (occurrence: DE)
  Receive Date: 20171128
  Receipt Date: 20180312
  Transmission Date: 20180508
  Serious: Yes (Death, Other)
  Sender: FDA-Public Use
  Company Number: DE-BRISTOL-MYERS SQUIBB COMPANY-BMS-2017-013120

PATIENT
  Age: 82 Year
  Sex: Female
  Weight: 82 kg

DRUGS (2)
  1. APIXABAN [Suspect]
     Active Substance: APIXABAN
     Indication: EMBOLISM VENOUS
     Dosage: 5 MG, BID
     Route: 048
     Dates: start: 20161110, end: 20161129
  2. XARELTO [Suspect]
     Active Substance: RIVAROXABAN
     Indication: ANTICOAGULANT THERAPY
     Dosage: 20 MG, QD
     Route: 065

REACTIONS (3)
  - Epistaxis [Fatal]
  - Sudden cardiac death [Fatal]
  - Prescribed underdose [Unknown]

NARRATIVE: CASE EVENT DATE: 20170115
